FAERS Safety Report 9555237 (Version 1)
Quarter: 2013Q3

REPORT INFORMATION
  Report Type: Spontaneous
  Country: US (occurrence: None)
  Receive Date: 20130925
  Receipt Date: 20130925
  Transmission Date: 20140515
  Serious: Yes (Hospitalization)
  Sender: FDA-Public Use
  Company Number: None

PATIENT
  Age: 35 Year
  Sex: Male
  Weight: 96 kg

DRUGS (5)
  1. VEMURAFENIB [Suspect]
     Indication: MALIGNANT MELANOMA
     Route: 048
     Dates: start: 20130906
  2. CLOTRIMAZOLE [Concomitant]
  3. LEETIRACETAM [Concomitant]
  4. ONDANSETRON [Concomitant]
  5. PANTOPRAZOLE [Concomitant]

REACTIONS (1)
  - Drug eruption [None]
